FAERS Safety Report 6455271-7 (Version None)
Quarter: 2009Q4

REPORT INFORMATION
  Report Type: 
  Country: None (occurrence: None)
  Receive Date: 20091119
  Receipt Date: 20091109
  Transmission Date: 20100525
  Serious: Yes (Life-Threatening, Hospitalization, Other)
  Sender: FDA-Public Use
  Company Number: 2009-04717

PATIENT
  Age: 65 Year
  Sex: Female
  Weight: 45 kg

DRUGS (11)
  1. VELCADE [Suspect]
     Indication: MULTIPLE MYELOMA
     Dosage: 1.8 MG, INTRAVENOUS
     Route: 042
     Dates: start: 20090825, end: 20091030
  2. LIPITOR [Concomitant]
  3. LANSOPRAZOLE [Concomitant]
  4. PREDONINE [Concomitant]
  5. ALFAROL (ALFACALCIDOL) [Concomitant]
  6. BASEN (VOGLIBOSE) [Concomitant]
  7. ZOVIRAX [Concomitant]
  8. LASIX [Concomitant]
  9. SUCRALFATE [Concomitant]
  10. BIOFERMIN (STREPTOCOCCUS FAECALIS, LACTOBACILLUS ACIDOPHILUS, BACILLUS [Concomitant]
  11. ALDACTONE [Concomitant]

REACTIONS (5)
  - BLOOD POTASSIUM DECREASED [None]
  - DIARRHOEA [None]
  - ELECTROLYTE IMBALANCE [None]
  - LOSS OF CONSCIOUSNESS [None]
  - SICK SINUS SYNDROME [None]
